FAERS Safety Report 24538831 (Version 1)
Quarter: 2024Q4

REPORT INFORMATION
  Report Type: Spontaneous
  Country: US (occurrence: US)
  Receive Date: 20241023
  Receipt Date: 20241023
  Transmission Date: 20250115
  Serious: No
  Sender: ELI LILLY AND COMPANY
  Company Number: US-ELI_LILLY_AND_COMPANY-US202410013813

PATIENT
  Sex: Female

DRUGS (1)
  1. KISUNLA [Suspect]
     Active Substance: DONANEMAB-AZBT
     Indication: Dementia Alzheimer^s type
     Dosage: 700 MG, UNKNOWN
     Route: 065
     Dates: start: 20240919

REACTIONS (5)
  - Confusional state [Unknown]
  - COVID-19 [Unknown]
  - Nausea [Unknown]
  - Vomiting [Unknown]
  - Headache [Unknown]

NARRATIVE: CASE EVENT DATE: 20241006
